FAERS Safety Report 7557729-6 (Version None)
Quarter: 2011Q2

REPORT INFORMATION
  Report Type: 
  Country: None (occurrence: None)
  Receive Date: 20110620
  Receipt Date: 20110607
  Transmission Date: 20111010
  Serious: Yes (Hospitalization)
  Sender: FDA-Public Use
  Company Number: US-ROCHE-782401

PATIENT
  Sex: Female

DRUGS (5)
  1. BEVACIZUMAB [Suspect]
     Indication: CERVIX CARCINOMA
     Dosage: OVER 30- 90 MIN ON DAY 1. DATE OF LAST ADMINISTRATION DOSE: 8 DECEMBER 2010. CYCLE: 21 DAYS.
     Route: 042
     Dates: start: 20091222
  2. DRONABINOL [Suspect]
     Route: 065
  3. TOPOTECAN [Suspect]
     Indication: CERVIX CARCINOMA
     Dosage: OVER 30 MIN ON DAYS 1- 3. CYCLE: 21 DAYS.
     Route: 042
     Dates: start: 20091222
  4. PACLITAXEL [Suspect]
     Indication: CERVIX CARCINOMA
     Dosage: OVER 3 HRS ON DAY 1. CYCLE: 21 DAYS.
     Route: 042
     Dates: start: 20091222
  5. DIPHENHYDRAMINE HCL [Suspect]
     Route: 065

REACTIONS (1)
  - VERTIGO POSITIONAL [None]
